FAERS Safety Report 16449812 (Version 1)
Quarter: 2019Q2

REPORT INFORMATION
  Report Type: Spontaneous
  Country: US (occurrence: US)
  Receive Date: 20190619
  Receipt Date: 20190619
  Transmission Date: 20190711
  Serious: No
  Sender: FDA-Public Use
  Company Number: US-SHIRE-US201919827

PATIENT
  Age: 62 Year
  Sex: Female

DRUGS (1)
  1. GAMMAGARD LIQUID [Suspect]
     Active Substance: HUMAN IMMUNOGLOBULIN G
     Indication: IMMUNODEFICIENCY
     Dosage: UNK UNK, EVERY 3 WK
     Route: 042
     Dates: start: 2016, end: 20190517

REACTIONS (5)
  - Musculoskeletal pain [Unknown]
  - Chills [Unknown]
  - Fatigue [Unknown]
  - Neck pain [Unknown]
  - Somnolence [Unknown]

NARRATIVE: CASE EVENT DATE: 201904
